FAERS Safety Report 25256409 (Version 2)
Quarter: 2025Q2

REPORT INFORMATION
  Report Type: Spontaneous
  Country: US (occurrence: US)
  Receive Date: 20250430
  Receipt Date: 20250521
  Transmission Date: 20250717
  Serious: Yes (Other)
  Sender: UPSHER SMITH LABORATORIES
  Company Number: US-UPSHER-SMITH LABORATORIES, LLC-20250400789

PATIENT
  Sex: Male

DRUGS (3)
  1. ISOTRETINOIN [Suspect]
     Active Substance: ISOTRETINOIN
     Indication: Acne
     Route: 065
     Dates: start: 202201, end: 2022
  2. ISOTRETINOIN [Suspect]
     Active Substance: ISOTRETINOIN
     Route: 065
  3. ISOTRETINOIN [Suspect]
     Active Substance: ISOTRETINOIN
     Route: 065

REACTIONS (20)
  - Neuropathy peripheral [Unknown]
  - Anxiety [Recovered/Resolved]
  - Lung disorder [Unknown]
  - Dysstasia [Unknown]
  - Cognitive disorder [Recovered/Resolved]
  - Anorectal disorder [Recovered/Resolved]
  - Sleep apnoea syndrome [Unknown]
  - Asthenia [Recovered/Resolved]
  - Coccydynia [Recovered/Resolved]
  - Chest pain [Recovered/Resolved]
  - Dry throat [Unknown]
  - Dyspnoea [Unknown]
  - Fatigue [Unknown]
  - Nasal dryness [Unknown]
  - Dry eye [Unknown]
  - Arthralgia [Recovered/Resolved]
  - Dry skin [Unknown]
  - Hypoacusis [Unknown]
  - Dry mouth [Unknown]
  - Weight decreased [Unknown]

NARRATIVE: CASE EVENT DATE: 20220101
